FAERS Safety Report 9200606 (Version 2)
Quarter: 2013Q1

REPORT INFORMATION
  Report Type: Spontaneous
  Country: US (occurrence: US)
  Receive Date: 20130329
  Receipt Date: 20130329
  Transmission Date: 20140127
  Serious: Yes (Hospitalization)
  Sender: FDA-Public Use
  Company Number: US-JNJCH-2007333728

PATIENT
  Age: 41 Year
  Sex: Male

DRUGS (7)
  1. IBUPROFEN [Suspect]
     Indication: SKIN WARM
     Dosage: EVERY 6 HOURS
     Route: 048
  2. ACETAMINOPHEN/DEXTROMETHORPHAN/PSEUDOEPHEDRINE [Suspect]
     Indication: ASTHENIA
     Dosage: ONE DOSE UNSPECIFIED
     Route: 065
  3. ACETAMINOPHEN/DEXTROMETHORPHAN/PSEUDOEPHEDRINE [Suspect]
     Indication: NAUSEA
  4. TRIMETHOBENZAMIDE [Concomitant]
  5. SULFAMETHOXAZOLE W/TRIMETHOPRIM [Concomitant]
  6. HYOSCYAMINE [Concomitant]
     Dosage: UNK AS NEEDED
  7. PROCHLORPERAZINE [Concomitant]

REACTIONS (13)
  - Renal injury [Recovering/Resolving]
  - Renal tubular necrosis [Recovering/Resolving]
  - Glomerulonephritis rapidly progressive [Recovering/Resolving]
  - Dehydration [Recovering/Resolving]
  - Hiccups [Unknown]
  - Insomnia [Unknown]
  - Cardiac murmur [Unknown]
  - Occult blood [Unknown]
  - Pleural fibrosis [Unknown]
  - Urinary casts [Unknown]
  - Glomerulonephritis minimal lesion [Recovering/Resolving]
  - Thrombotic microangiopathy [Recovering/Resolving]
  - Gastrointestinal tract irritation [Recovered/Resolved]
